FAERS Safety Report 20033733 (Version 2)
Quarter: 2022Q2

REPORT INFORMATION
  Report Type: Report from Study
  Country: EG (occurrence: EG)
  Receive Date: 20211104
  Receipt Date: 20220502
  Transmission Date: 20220721
  Serious: Yes (Other)
  Sender: FDA-Public Use
  Company Number: EG-NOVARTISPH-NVSC2021EG249382

PATIENT
  Age: 34 Year
  Sex: Male

DRUGS (4)
  1. GILENYA [Suspect]
     Active Substance: FINGOLIMOD HYDROCHLORIDE
     Indication: Multiple sclerosis
     Dosage: 0.5 MG, QD
     Route: 048
     Dates: start: 20210930, end: 20211027
  2. GILENYA [Suspect]
     Active Substance: FINGOLIMOD HYDROCHLORIDE
     Dosage: 0.5 MG, QD
     Route: 048
     Dates: start: 20210927, end: 202201
  3. ESZOPICLONE [Concomitant]
     Active Substance: ESZOPICLONE
     Indication: Insomnia
     Dosage: 1 DF, QD
     Route: 048
     Dates: start: 2019
  4. CONVENTIN [Concomitant]
     Indication: Tremor
     Dosage: 400 MG
     Route: 048
     Dates: start: 202105

REACTIONS (9)
  - Gait disturbance [Not Recovered/Not Resolved]
  - Nervous system disorder [Not Recovered/Not Resolved]
  - Depression [Not Recovered/Not Resolved]
  - Emotional distress [Not Recovered/Not Resolved]
  - Insomnia [Not Recovered/Not Resolved]
  - Drug abuse [Not Recovered/Not Resolved]
  - Eye pain [Recovering/Resolving]
  - Headache [Recovering/Resolving]
  - Product dispensing issue [Recovering/Resolving]

NARRATIVE: CASE EVENT DATE: 20210930
